FAERS Safety Report 24873273 (Version 2)
Quarter: 2025Q1

REPORT INFORMATION
  Report Type: Spontaneous
  Country: US (occurrence: US)
  Receive Date: 20250122
  Receipt Date: 20250122
  Transmission Date: 20250408
  Serious: Yes (Hospitalization)
  Sender: ROCHE
  Company Number: US-ROCHE-10000185261

PATIENT
  Age: 52 Year
  Sex: Female

DRUGS (1)
  1. ACTEMRA ACTPEN [Suspect]
     Active Substance: TOCILIZUMAB
     Indication: Rheumatoid arthritis
     Dosage: STRENGTH 162MG/0.9ML
     Route: 058

REACTIONS (5)
  - Dizziness [Unknown]
  - Feeling hot [Unknown]
  - Muscle spasms [Unknown]
  - Pain [Unknown]
  - Syncope [Unknown]
